FAERS Safety Report 13989297 (Version 3)
Quarter: 2018Q3

REPORT INFORMATION
  Report Type: Spontaneous
  Country: CA (occurrence: CA)
  Receive Date: 20170920
  Receipt Date: 20180822
  Transmission Date: 20181010
  Serious: Yes (Other)
  Sender: FDA-Public Use
  Company Number: CA-CONCORDIA PHARMACEUTICALS INC.-GSH201709-005374

PATIENT
  Age: 49 Year
  Sex: Female

DRUGS (10)
  1. ARAVA [Suspect]
     Active Substance: LEFLUNOMIDE
     Route: 048
  2. ACTEMRA [Suspect]
     Active Substance: TOCILIZUMAB
     Indication: RHEUMATOID ARTHRITIS
     Route: 065
  3. HYDROXYCHLOROQUINE [Suspect]
     Active Substance: HYDROXYCHLOROQUINE
     Indication: RHEUMATOID ARTHRITIS
     Route: 065
  4. ORENCIA [Suspect]
     Active Substance: ABATACEPT
     Indication: RHEUMATOID ARTHRITIS
     Route: 065
  5. SULFASALAZINE. [Suspect]
     Active Substance: SULFASALAZINE
     Indication: RHEUMATOID ARTHRITIS
     Route: 065
  6. ENBREL [Suspect]
     Active Substance: ETANERCEPT
     Indication: RHEUMATOID ARTHRITIS
     Route: 065
  7. REMICADE [Suspect]
     Active Substance: INFLIXIMAB
     Indication: RHEUMATOID ARTHRITIS
     Route: 042
  8. ANAKINRA [Concomitant]
     Active Substance: ANAKINRA
  9. ARAVA [Suspect]
     Active Substance: LEFLUNOMIDE
     Indication: RHEUMATOID ARTHRITIS
     Route: 048
     Dates: start: 20151030
  10. METHOTREXATE. [Suspect]
     Active Substance: METHOTREXATE
     Indication: RHEUMATOID ARTHRITIS
     Route: 065

REACTIONS (5)
  - Drug ineffective [Unknown]
  - Vomiting [Unknown]
  - Drug hypersensitivity [Unknown]
  - Hepatitis [Unknown]
  - Drug intolerance [Unknown]
